FAERS Safety Report 12409323 (Version 1)
Quarter: 2016Q2

REPORT INFORMATION
  Report Type: Report from Study
  Country: US (occurrence: US)
  Receive Date: 20160526
  Receipt Date: 20160526
  Transmission Date: 20160815
  Serious: Yes (Hospitalization)
  Sender: FDA-Public Use
  Company Number: US-EISAI MEDICAL RESEARCH-EC-2016-013444

PATIENT
  Age: 80 Year
  Sex: Female
  Weight: 68 kg

DRUGS (13)
  1. LENVIMA [Suspect]
     Active Substance: LENVATINIB
     Route: 048
     Dates: start: 20160515
  2. SYNTHROID [Concomitant]
     Active Substance: LEVOTHYROXINE SODIUM
  3. AMLODIPINE [Concomitant]
     Active Substance: AMLODIPINE BESYLATE
  4. CALCIUM+D [Concomitant]
  5. TRIAMTERENE. [Concomitant]
     Active Substance: TRIAMTERENE
  6. MULTIVITAMIN 50 PLUS [Concomitant]
  7. LENVIMA [Suspect]
     Active Substance: LENVATINIB
     Route: 048
     Dates: start: 20160322, end: 20160425
  8. GABAPENTIN. [Concomitant]
     Active Substance: GABAPENTIN
  9. LENVIMA [Suspect]
     Active Substance: LENVATINIB
     Indication: THYROID CANCER
     Route: 048
     Dates: start: 20151211, end: 20160315
  10. PRAVACHOL [Concomitant]
     Active Substance: PRAVASTATIN SODIUM
  11. LENVIMA [Suspect]
     Active Substance: LENVATINIB
     Route: 048
     Dates: start: 20160426, end: 20160514
  12. EVISTA [Concomitant]
     Active Substance: RALOXIFENE HYDROCHLORIDE
  13. LASIX [Concomitant]
     Active Substance: FUROSEMIDE

REACTIONS (21)
  - Confusional state [Unknown]
  - Hypertension [Unknown]
  - Thinking abnormal [Unknown]
  - Coordination abnormal [Unknown]
  - Blood thyroid stimulating hormone [Unknown]
  - Muscular weakness [Unknown]
  - Pain in extremity [Unknown]
  - Bloody discharge [Unknown]
  - Decreased appetite [Unknown]
  - Headache [Unknown]
  - Drug dose omission [Unknown]
  - Dry skin [Unknown]
  - Diarrhoea [Unknown]
  - Inappropriate antidiuretic hormone secretion [Recovering/Resolving]
  - Oral pain [Unknown]
  - Glossodynia [Unknown]
  - Myalgia [Unknown]
  - Oral pain [Unknown]
  - Facial pain [Unknown]
  - Musculoskeletal pain [Unknown]
  - Fatigue [Unknown]

NARRATIVE: CASE EVENT DATE: 2016
